FAERS Safety Report 14172800 (Version 1)
Quarter: 2017Q4

REPORT INFORMATION
  Report Type: Spontaneous
  Country: US (occurrence: US)
  Receive Date: 20171108
  Receipt Date: 20171108
  Transmission Date: 20180321
  Serious: Yes (Other)
  Sender: FDA-Public Use
  Company Number: None

PATIENT
  Age: 58 Year
  Sex: Female
  Weight: 65.25 kg

DRUGS (6)
  1. SENNA CONSTIPATION [Concomitant]
  2. TYNELOL [Concomitant]
     Active Substance: ACETAMINOPHEN
  3. FIBER GUMMIES [Concomitant]
  4. VITAMIN D [Concomitant]
     Active Substance: CHOLECALCIFEROL
  5. SUBOXONE [Suspect]
     Active Substance: BUPRENORPHINE HYDROCHLORIDE\NALOXONE HYDROCHLORIDE
     Indication: DRUG DEPENDENCE
     Route: 060
  6. VIT B [Concomitant]
     Active Substance: VITAMIN B

REACTIONS (12)
  - Product substitution issue [None]
  - Back pain [None]
  - Intestinal obstruction [None]
  - Cardiac disorder [None]
  - Faecaloma [None]
  - Abdominal pain upper [None]
  - Hypovitaminosis [None]
  - Fatigue [None]
  - Constipation [None]
  - Hepatitis C [None]
  - Biliary tract disorder [None]
  - Impaired work ability [None]

NARRATIVE: CASE EVENT DATE: 20151030
